FAERS Safety Report 7910306-7 (Version None)
Quarter: 2011Q4

REPORT INFORMATION
  Report Type: 
  Country: None (occurrence: None)
  Receive Date: 20111111
  Receipt Date: 20111031
  Transmission Date: 20120403
  Serious: Yes (Hospitalization)
  Sender: FDA-Public Use
  Company Number: NL-JNJFOC-20111013459

PATIENT
  Sex: Female
  Weight: 79 kg

DRUGS (6)
  1. INFLIXIMAB, RECOMBINANT [Suspect]
     Indication: RHEUMATOID ARTHRITIS
     Route: 042
     Dates: start: 20011012, end: 20020602
  2. OMEPRAZOLE [Suspect]
     Indication: GASTROINTESTINAL DISORDER THERAPY
  3. FOLIC ACID [Concomitant]
     Dates: start: 20011012
  4. METHOTREXATE [Suspect]
     Indication: RHEUMATOID ARTHRITIS
     Dates: start: 20011012
  5. DIOVAN [Suspect]
     Indication: PRODUCT USED FOR UNKNOWN INDICATION
  6. CALCIUM [Suspect]
     Indication: OSTEOPOROSIS

REACTIONS (1)
  - THYROID NEOPLASM [None]
